FAERS Safety Report 8476083-9 (Version None)
Quarter: 2012Q2

REPORT INFORMATION
  Report Type: 
  Country: None (occurrence: None)
  Receive Date: 20120628
  Receipt Date: 20120615
  Transmission Date: 20120825
  Serious: Yes (Hospitalization)
  Sender: FDA-Public Use
  Company Number: US-ELI_LILLY_AND_COMPANY-US201204010099

PATIENT
  Age: 74 Year
  Sex: Female

DRUGS (29)
  1. ZYPREXA [Suspect]
     Indication: BIPOLAR DISORDER
     Dosage: 10 MG, BID
     Route: 048
  2. VITAMIN B COMPLEX CAP [Concomitant]
  3. ZYPREXA [Suspect]
     Dosage: 5 MG, EACH MORNING
  4. MAGNESIUM OXIDE [Concomitant]
     Dosage: 400 MG, BID
  5. EFFEXOR XR [Concomitant]
     Dosage: 75 MG, BID
  6. LAMICTAL [Concomitant]
     Dosage: 100 MG, EACH MORNING
  7. OSTEO BI-FLEX [Concomitant]
     Dosage: 1 DF, BID
  8. MULTI-VITAMIN [Concomitant]
  9. REMERON [Concomitant]
     Dosage: 15 MG, UNK
  10. LECITHIN [Concomitant]
     Dosage: 500 MG, UNK
  11. COLACE [Concomitant]
     Dosage: 200 MG, UNK
  12. ZYPREXA [Suspect]
     Dosage: 10 MG, TID
  13. LAMICTAL [Concomitant]
     Dosage: 200 MG, EACH EVENING
  14. GLIPIZIDE [Concomitant]
     Dosage: 1 DF, QD
  15. VESICARE [Concomitant]
  16. LISINOPRIL [Concomitant]
     Dosage: 40 MG, BID
  17. METFORMIN HCL [Concomitant]
     Dosage: 500 MG, BID
  18. VITAMIN D [Concomitant]
  19. LOSARTAN POTASSIUM [Concomitant]
     Dosage: 50 MG, BID
  20. NIFEDIPINE [Concomitant]
     Dosage: 90 MG, QD
  21. IRON [Concomitant]
     Dosage: 1 DF, QD
  22. ASPIRIN [Concomitant]
     Dosage: 325 MG, UNK
  23. ZYPREXA [Suspect]
     Dosage: 5 MG, TID
  24. ZYPREXA [Suspect]
     Dosage: 5 MG, EACH EVENING
  25. CALCIUM CARBONATE [Concomitant]
     Dosage: 1 DF, BID
  26. SYNTHROID [Concomitant]
     Dosage: 175 UG, UNK
  27. METOPROLOL TARTRATE [Concomitant]
     Dosage: 25 MG, BID
  28. FISH OIL [Concomitant]
  29. VITAMIN E [Concomitant]

REACTIONS (14)
  - EXCESSIVE EYE BLINKING [None]
  - SLEEP DISORDER [None]
  - FATIGUE [None]
  - DYSKINESIA [None]
  - POLLAKIURIA [None]
  - EXTRAPYRAMIDAL DISORDER [None]
  - NAUSEA [None]
  - HALLUCINATION [None]
  - DYSPHAGIA [None]
  - OVERDOSE [None]
  - TREMOR [None]
  - ANXIETY [None]
  - URINE OUTPUT DECREASED [None]
  - DIABETES MELLITUS [None]
